FAERS Safety Report 12395783 (Version 1)
Quarter: 2016Q2

REPORT INFORMATION
  Report Type: Spontaneous
  Country: US (occurrence: US)
  Receive Date: 20160523
  Receipt Date: 20160523
  Transmission Date: 20160815
  Serious: No
  Sender: FDA-Public Use
  Company Number: US-BANPHARM-20153982

PATIENT

DRUGS (2)
  1. MOTRIN IB [Suspect]
     Active Substance: IBUPROFEN
     Dosage: 2 DF,
     Route: 048
  2. MOTRIN IB [Suspect]
     Active Substance: IBUPROFEN
     Dosage: 4 DF,
     Route: 048

REACTIONS (1)
  - Drug ineffective [Unknown]
